FAERS Safety Report 18911646 (Version 1)
Quarter: 2021Q1

REPORT INFORMATION
  Report Type: Spontaneous
  Country: US (occurrence: AR)
  Receive Date: 20210218
  Receipt Date: 20210218
  Transmission Date: 20210420
  Serious: Yes (Death, Other)
  Sender: FDA-Public Use
  Company Number: US-PFIZER INC-K200601024

PATIENT
  Age: 70 Year
  Sex: Female

DRUGS (1)
  1. BENZETACIL L?A [Suspect]
     Active Substance: PENICILLIN G BENZATHINE
     Dosage: 1 DOSE , QMON
     Route: 030
     Dates: start: 200605, end: 20060727

REACTIONS (4)
  - Loss of consciousness [Fatal]
  - Death [Fatal]
  - Cerebrovascular accident [Fatal]
  - Epistaxis [Fatal]

NARRATIVE: CASE EVENT DATE: 20060727
